FAERS Safety Report 20069202 (Version 1)
Quarter: 2022Q1

REPORT INFORMATION
  Report Type: Spontaneous
  Country: None (occurrence: US)
  Receive Date: 20211115
  Receipt Date: 20211115
  Transmission Date: 20220423
  Serious: No
  Sender: FDA-Public Use
  Company Number: US-Matrixx Initiatives, Inc.-2121871

PATIENT
  Age: 41 Year
  Sex: Female
  Weight: 100 kg

DRUGS (6)
  1. HOMEOPATHICS [Suspect]
     Active Substance: HOMEOPATHICS
     Indication: Nasopharyngitis
     Route: 045
  2. METFORMIN [Concomitant]
     Active Substance: METFORMIN HYDROCHLORIDE
  3. VITAMIN D [Concomitant]
     Active Substance: VITAMIN D NOS
  4. FISH OIL [Concomitant]
     Active Substance: FISH OIL
  5. GLUCOSAMINE [Concomitant]
     Active Substance: GLUCOSAMINE
  6. COLLAGEN [Concomitant]
     Active Substance: COLLAGEN

REACTIONS (3)
  - Nasal discomfort [None]
  - Headache [None]
  - Anosmia [None]
